FAERS Safety Report 26216413 (Version 1)
Quarter: 2025Q4

REPORT INFORMATION
  Report Type: Spontaneous
  Country: US (occurrence: US)
  Receive Date: 20251231
  Receipt Date: 20251231
  Transmission Date: 20260118
  Serious: Yes (Hospitalization, Other)
  Sender: ALEMBIC
  Company Number: US-ALEMBIC PHARMACUETICALS LIMITED-2025SCAL001862

PATIENT

DRUGS (1)
  1. TICAGRELOR [Suspect]
     Active Substance: TICAGRELOR
     Indication: Acute myocardial infarction
     Dosage: UNK
     Route: 065

REACTIONS (18)
  - Atypical haemolytic uraemic syndrome [Recovering/Resolving]
  - Abdominal pain [Recovering/Resolving]
  - Diarrhoea [Recovering/Resolving]
  - Nausea [Recovering/Resolving]
  - Vomiting [Recovering/Resolving]
  - Asthenia [Recovering/Resolving]
  - Chills [Recovering/Resolving]
  - Hypotension [Recovering/Resolving]
  - Abdominal tenderness [Recovering/Resolving]
  - Skin discolouration [Recovering/Resolving]
  - Acute kidney injury [Recovering/Resolving]
  - Hyperbilirubinaemia [Recovering/Resolving]
  - Thrombocytopenia [Recovering/Resolving]
  - Haemolysis [Recovering/Resolving]
  - Clostridium difficile infection [Recovering/Resolving]
  - Sepsis [Recovering/Resolving]
  - Bacteraemia [Recovering/Resolving]
  - Multiple organ dysfunction syndrome [Recovering/Resolving]
